FAERS Safety Report 10154738 (Version 1)
Quarter: 2014Q2

REPORT INFORMATION
  Report Type: Spontaneous
  Country: US (occurrence: None)
  Receive Date: 20140505
  Receipt Date: 20140505
  Transmission Date: 20141212
  Serious: No
  Sender: FDA-Public Use
  Company Number: None

PATIENT
  Age: 12 Year
  Sex: Male
  Weight: 72.58 kg

DRUGS (1)
  1. METHYLPHENIDATE ER [Suspect]
     Indication: ATTENTION DEFICIT/HYPERACTIVITY DISORDER
     Dosage: ONCE IN MORNING
     Route: 048
     Dates: start: 20140414, end: 20140421

REACTIONS (4)
  - Depression [None]
  - Feeling guilty [None]
  - Priapism [None]
  - Product substitution issue [None]
